FAERS Safety Report 24019826 (Version 1)
Quarter: 2024Q2

REPORT INFORMATION
  Report Type: Spontaneous
  Country: US (occurrence: US)
  Receive Date: 20240627
  Receipt Date: 20240627
  Transmission Date: 20240716
  Serious: Yes (Hospitalization)
  Sender: FDA-Public Use
  Company Number: US-AMGEN-USASP2024123700

PATIENT
  Age: 21 Month
  Sex: Male

DRUGS (7)
  1. RAVICTI [Suspect]
     Active Substance: GLYCEROL PHENYLBUTYRATE
     Indication: Ornithine transcarbamoylase deficiency
     Dosage: 1.8 MILLILITER, TID (1.8 ML BY MOUTH THREE TIMES DAILY WITH MEALS. TOTAL DAILY DOSE IS 5.4 ML)
     Route: 048
  2. RAVICTI [Suspect]
     Active Substance: GLYCEROL PHENYLBUTYRATE
     Dosage: 2 MILLILITER, TID
     Route: 048
  3. Pro Phree [Concomitant]
     Dosage: UNK, (5.5 GRAM/1 00 POWDER)
  4. CEFAZOLIN SODIUM [Concomitant]
     Active Substance: CEFAZOLIN SODIUM
     Dosage: 10 GRAM (VIAL)
  5. CITRULLINE 1000 [Concomitant]
     Dosage: UNK (1 G/4 G )
  6. CYCLINEX 1 [Concomitant]
     Dosage: UNK, (7.5G-510)
  7. AMINO ACIDS\CARBOHYDRATES\MINERALS\VITAMINS [Concomitant]
     Active Substance: AMINO ACIDS\CARBOHYDRATES\MINERALS\VITAMINS
     Dosage: UNK (15G-440)

REACTIONS (1)
  - Hospitalisation [Unknown]

NARRATIVE: CASE EVENT DATE: 20240620
